FAERS Safety Report 4808441-5 (Version None)
Quarter: 2005Q4

REPORT INFORMATION
  Report Type: 
  Country: None (occurrence: None)
  Receive Date: 20051020
  Receipt Date: 20051007
  Transmission Date: 20060501
  Serious: Yes (Other)
  Sender: FDA-Public Use
  Company Number: HQWYE986513OCT05

PATIENT
  Age: 68 Year
  Sex: Female

DRUGS (2)
  1. EFFEXOR [Suspect]
     Indication: DEPRESSION
     Dosage: 150 MG 1X PER 1 DAY ORAL
     Route: 048
     Dates: start: 20040311, end: 20050316
  2. TRAMADOL HCL [Suspect]
     Indication: NECK PAIN
     Dosage: 200 MG 1X PER 1 DAY ORAL
     Route: 048
     Dates: start: 20050317, end: 20050318

REACTIONS (6)
  - BALANCE DISORDER [None]
  - DRUG INTERACTION [None]
  - PRURITUS [None]
  - SEROTONIN SYNDROME [None]
  - SOMNOLENCE [None]
  - URTICARIA [None]
